FAERS Safety Report 4358877-4 (Version None)
Quarter: 2004Q2

REPORT INFORMATION
  Report Type: 
  Country: None (occurrence: None)
  Receive Date: 20040512
  Receipt Date: 20040427
  Transmission Date: 20050107
  Serious: Yes (Death, Hospitalization)
  Sender: FDA-Public Use
  Company Number: JP_031102170

PATIENT
  Age: 76 Year
  Sex: Male
  Weight: 43 kg

DRUGS (1)
  1. GEMZAR [Suspect]
     Indication: PANCREATIC CARCINOMA
     Dosage: 1000 MG/OTHER
     Route: 042
     Dates: start: 20030618, end: 20030820

REACTIONS (4)
  - CEREBROVASCULAR DISORDER [None]
  - CHOLANGITIS [None]
  - DEPRESSED LEVEL OF CONSCIOUSNESS [None]
  - HEPATIC ENZYME INCREASED [None]
